FAERS Safety Report 4279324-7 (Version None)
Quarter: 2004Q1

REPORT INFORMATION
  Report Type: 
  Country: None (occurrence: None)
  Receive Date: 20040122
  Receipt Date: 20031031
  Transmission Date: 20041129
  Serious: No
  Sender: FDA-Public Use
  Company Number: JP-JNJFOC-20031105409

PATIENT
  Age: 51 Year
  Sex: Female
  Weight: 56 kg

DRUGS (14)
  1. REMICADE [Suspect]
     Indication: RHEUMATOID ARTHRITIS
     Dosage: SEE IMAGE
     Route: 041
     Dates: start: 20031015, end: 20031015
  2. REMICADE [Suspect]
     Indication: RHEUMATOID ARTHRITIS
     Dosage: SEE IMAGE
     Route: 041
     Dates: start: 20031030, end: 20031030
  3. RHEUMATREX [Suspect]
     Dosage: SEE IMAGE
     Route: 048
     Dates: start: 20021011, end: 20021024
  4. RHEUMATREX [Suspect]
     Dosage: SEE IMAGE
     Route: 048
     Dates: start: 20021025, end: 20030121
  5. RHEUMATREX [Suspect]
     Dosage: SEE IMAGE
     Route: 048
     Dates: start: 20030122, end: 20031030
  6. RHEUMATREX [Suspect]
     Dosage: SEE IMAGE
     Route: 048
     Dates: start: 20031030
  7. REBAMIPIDE (REBAMIPIDE) [Concomitant]
  8. PREDNISOLONE [Concomitant]
  9. SODIUM FERROUS CITRATE (SODIUM FEREDETATE [Concomitant]
  10. FERROMIA (FERROUS CITRATE) [Concomitant]
  11. FOLIAMIN (FOLIC ACID) [Concomitant]
  12. INDOMETHACIN [Concomitant]
  13. MUKOSTA (ALL OTHER THERAPEUTIC PRODUCTS) [Concomitant]
  14. ALFAROL (ALFACALCIDOL) [Concomitant]

REACTIONS (6)
  - DEPRESSED LEVEL OF CONSCIOUSNESS [None]
  - FEELING HOT [None]
  - HEADACHE [None]
  - HEPATIC FUNCTION ABNORMAL [None]
  - NECK PAIN [None]
  - RASH [None]
